FAERS Safety Report 23833323 (Version 2)
Quarter: 2024Q2

REPORT INFORMATION
  Report Type: Report from Study
  Country: FR (occurrence: None)
  Receive Date: 20240508
  Receipt Date: 20240626
  Transmission Date: 20240716
  Serious: Yes (Other)
  Sender: FDA-Public Use
  Company Number: 2024A106765

PATIENT
  Sex: Female
  Weight: 63 kg

DRUGS (1)
  1. IMFINZI [Suspect]
     Active Substance: DURVALUMAB
     Indication: HER2 positive biliary tract cancer
     Route: 042
     Dates: start: 20240312, end: 20240318

REACTIONS (2)
  - Paraneoplastic syndrome [Recovering/Resolving]
  - Peripheral ischaemia [Recovering/Resolving]
